FAERS Safety Report 21357490 (Version 2)
Quarter: 2022Q3

REPORT INFORMATION
  Report Type: Report from Study
  Country: US (occurrence: US)
  Receive Date: 20220921
  Receipt Date: 20220928
  Transmission Date: 20221027
  Serious: Yes (Other)
  Sender: FDA-Public Use
  Company Number: US-ABBVIE-4127226

PATIENT
  Sex: Female

DRUGS (3)
  1. HUMIRA [Suspect]
     Active Substance: ADALIMUMAB
     Indication: Crohn^s disease
     Route: 058
  2. PFIZER-BIONTECH COVID-19 VACCINE [Concomitant]
     Active Substance: TOZINAMERAN
     Indication: COVID-19 immunisation
     Dosage: FREQUENCY: ONE IN ONCE
     Route: 030
  3. PFIZER-BIONTECH COVID-19 VACCINE [Concomitant]
     Active Substance: TOZINAMERAN
     Indication: COVID-19 immunisation
     Dosage: FREQUENCY: ONE IN ONCE??BOOSTER DOSE
     Route: 030

REACTIONS (8)
  - Coronary arterial stent insertion [Not Recovered/Not Resolved]
  - Crohn^s disease [Recovering/Resolving]
  - Drug hypersensitivity [Not Recovered/Not Resolved]
  - Multiple allergies [Not Recovered/Not Resolved]
  - Scab [Not Recovered/Not Resolved]
  - Gastric operation [Recovered/Resolved]
  - Skin mass [Not Recovered/Not Resolved]
  - Rash macular [Not Recovered/Not Resolved]
